FAERS Safety Report 17804670 (Version 1)
Quarter: 2020Q2

REPORT INFORMATION
  Report Type: Report from Study
  Country: CA (occurrence: CA)
  Receive Date: 20200519
  Receipt Date: 20200519
  Transmission Date: 20200714
  Serious: Yes (Hospitalization, Other)
  Sender: FDA-Public Use
  Company Number: CA-ASTRAZENECA-2019SF68746

PATIENT
  Age: 25877 Day
  Sex: Male

DRUGS (13)
  1. SALBUTAMOL [Concomitant]
     Active Substance: ALBUTEROL
     Indication: ASTHMA-CHRONIC OBSTRUCTIVE PULMONARY DISEASE OVERLAP SYNDROME
  2. ASA [Concomitant]
     Active Substance: ASPIRIN
     Indication: TROPONIN T INCREASED
     Route: 048
     Dates: start: 201903
  3. PLAVIX [Concomitant]
     Active Substance: CLOPIDOGREL BISULFATE
     Dosage: TOTAL 1 MONTH THERAPY
     Route: 048
     Dates: end: 20190602
  4. SPIRIVA [Concomitant]
     Active Substance: TIOTROPIUM BROMIDE MONOHYDRATE
  5. SYMBICORT [Concomitant]
     Active Substance: BUDESONIDE\FORMOTEROL FUMARATE DIHYDRATE
  6. FASENRA [Suspect]
     Active Substance: BENRALIZUMAB
     Indication: ASTHMA
     Dosage: 30.0MG UNKNOWN
     Route: 058
     Dates: start: 20190604, end: 202002
  7. VENTOLIN [Concomitant]
     Active Substance: ALBUTEROL SULFATE
     Indication: ASTHMA-CHRONIC OBSTRUCTIVE PULMONARY DISEASE OVERLAP SYNDROME
     Dosage: NEBS P.R.N.
  8. CRESTOR [Concomitant]
     Active Substance: ROSUVASTATIN CALCIUM
     Dosage: NIGHTLY
     Route: 048
  9. ENOXAPARIN [Concomitant]
     Active Substance: ENOXAPARIN
  10. CEFTRIAXONE. [Concomitant]
     Active Substance: CEFTRIAXONE
  11. AZITHROMYCIN ANHYDROUS. [Concomitant]
     Active Substance: AZITHROMYCIN ANHYDROUS
  12. PULMICORT TURBUHALER [Concomitant]
     Active Substance: BUDESONIDE
  13. PREDNISONE. [Concomitant]
     Active Substance: PREDNISONE
     Dosage: TOTAL 7 DAYS

REACTIONS (2)
  - Asthma [Recovering/Resolving]
  - Drug ineffective [Unknown]

NARRATIVE: CASE EVENT DATE: 20191024
